FAERS Safety Report 20495729 (Version 5)
Quarter: 2022Q1

REPORT INFORMATION
  Report Type: Spontaneous
  Country: US (occurrence: US)
  Receive Date: 20220221
  Receipt Date: 20220318
  Transmission Date: 20220423
  Serious: Yes (Other)
  Sender: FDA-Public Use
  Company Number: US-BAYER-2022A024997

PATIENT
  Age: 34 Year
  Sex: Female

DRUGS (1)
  1. MIRENA [Suspect]
     Active Substance: LEVONORGESTREL
     Indication: Contraception
     Dosage: 20?G/DAY
     Route: 015
     Dates: end: 20220217

REACTIONS (4)
  - Device breakage [Recovered/Resolved]
  - Complication of device removal [None]
  - Embedded device [None]
  - Device difficult to use [None]

NARRATIVE: CASE EVENT DATE: 20220217
